FAERS Safety Report 16274968 (Version 1)
Quarter: 2019Q2

REPORT INFORMATION
  Report Type: Spontaneous
  Country: CZ (occurrence: CZ)
  Receive Date: 20190504
  Receipt Date: 20190504
  Transmission Date: 20190711
  Serious: Yes (Death, Hospitalization, Other)
  Sender: FDA-Public Use
  Company Number: PHHY2019CZ097251

PATIENT
  Age: 84 Year
  Sex: Male

DRUGS (2)
  1. MEKINIST [Suspect]
     Active Substance: TRAMETINIB DIMETHYL SULFOXIDE
     Indication: MALIGNANT MELANOMA
     Dosage: 2 MG, QD (1-0-0)
     Route: 065
     Dates: start: 20161128
  2. TAFINLAR [Suspect]
     Active Substance: DABRAFENIB MESYLATE
     Indication: MALIGNANT MELANOMA
     Dosage: 75 MG, BID (2-0-2)
     Route: 065
     Dates: start: 20160806

REACTIONS (12)
  - Thrombocytopenia [Unknown]
  - Aphasia [Unknown]
  - Death [Fatal]
  - Meningioma [Unknown]
  - Pruritus [Unknown]
  - Keratoacanthoma [Unknown]
  - Basal cell carcinoma [Unknown]
  - Second primary malignancy [Unknown]
  - Squamous cell carcinoma [Unknown]
  - Metastases to lung [Unknown]
  - Rash maculo-papular [Unknown]
  - Spinal osteoarthritis [Unknown]

NARRATIVE: CASE EVENT DATE: 201704
